FAERS Safety Report 7056851-0 (Version None)
Quarter: 2010Q4

REPORT INFORMATION
  Report Type: 
  Country: None (occurrence: None)
  Receive Date: 20101022
  Receipt Date: 20101012
  Transmission Date: 20110411
  Serious: Yes (Other)
  Sender: FDA-Public Use
  Company Number: HU-JNJFOC-20101003397

PATIENT
  Sex: Male

DRUGS (8)
  1. REMICADE [Suspect]
     Indication: ANKYLOSING SPONDYLITIS
     Route: 042
  2. REMICADE [Suspect]
     Route: 042
  3. REMICADE [Suspect]
     Route: 042
  4. REMICADE [Suspect]
     Route: 042
  5. REMICADE [Suspect]
     Route: 042
  6. PIROXICAM [Concomitant]
     Indication: ANKYLOSING SPONDYLITIS
  7. MELOXICAM [Concomitant]
     Indication: ANKYLOSING SPONDYLITIS
  8. IBUPROFEN [Concomitant]
     Indication: ANKYLOSING SPONDYLITIS

REACTIONS (2)
  - ALCOHOLIC LIVER DISEASE [None]
  - LUNG NEOPLASM MALIGNANT [None]
